FAERS Safety Report 23547396 (Version 4)
Quarter: 2024Q3

REPORT INFORMATION
  Report Type: Spontaneous
  Country: US (occurrence: US)
  Receive Date: 20240221
  Receipt Date: 20240730
  Transmission Date: 20241017
  Serious: Yes (Hospitalization, Other)
  Sender: SANOFI AVENTIS
  Company Number: US-SA-SAC20240220000116

PATIENT
  Sex: Female
  Weight: 54 kg

DRUGS (26)
  1. DUPIXENT [Suspect]
     Active Substance: DUPILUMAB
     Indication: Dermatitis atopic
     Dosage: 300 MG, QOW
     Route: 058
  2. DUPIXENT [Suspect]
     Active Substance: DUPILUMAB
     Indication: Asthma
  3. PREDNISONE [Suspect]
     Active Substance: PREDNISONE
     Dosage: UNK
  4. TOBRAMYCIN [Concomitant]
     Active Substance: TOBRAMYCIN\TOBRAMYCIN SULFATE
  5. MEROPENEM [Concomitant]
     Active Substance: MEROPENEM
  6. FRANKINCENSE [Concomitant]
     Active Substance: FRANKINCENSE
  7. VANCOMYCIN HYDROCHLORIDE [Concomitant]
     Active Substance: VANCOMYCIN HYDROCHLORIDE
  8. BREO ELLIPTA [Concomitant]
     Active Substance: FLUTICASONE FUROATE\VILANTEROL TRIFENATATE
  9. SPIRIVA RESPIMAT [Concomitant]
     Active Substance: TIOTROPIUM BROMIDE
  10. REDNISONE [Concomitant]
  11. JANVIA [Concomitant]
  12. BETAMETHASONE\CLOTRIMAZOLE [Concomitant]
     Active Substance: BETAMETHASONE\CLOTRIMAZOLE
  13. ALBUTEROL SULFATE [Concomitant]
     Active Substance: ALBUTEROL SULFATE
  14. FERROUS SULFATE [Concomitant]
     Active Substance: FERROUS SULFATE
  15. DALIRESP [Concomitant]
     Active Substance: ROFLUMILAST
  16. FUROSEMIDE [Concomitant]
     Active Substance: FUROSEMIDE
  17. FENOFIBRATE [Concomitant]
     Active Substance: FENOFIBRATE
  18. ESCITALOPRAM OXALATE [Concomitant]
     Active Substance: ESCITALOPRAM OXALATE
  19. CALCIUM [Concomitant]
     Active Substance: CALCIUM
  20. LEVOXYL [Concomitant]
     Active Substance: LEVOTHYROXINE SODIUM
  21. TYMLOS [Concomitant]
     Active Substance: ABALOPARATIDE
  22. VITAMIN D3 [Concomitant]
     Active Substance: CHOLECALCIFEROL
     Dosage: UNK
  23. VITAMIN C [Concomitant]
     Active Substance: ASCORBIC ACID
  24. SODIUM CHLORIDE [Concomitant]
     Active Substance: SODIUM CHLORIDE
  25. CALCIUM CARBONATE [Concomitant]
     Active Substance: CALCIUM CARBONATE
  26. CAYSTON [Concomitant]
     Active Substance: AZTREONAM

REACTIONS (10)
  - Adrenal insufficiency [Unknown]
  - Lung disorder [Unknown]
  - Hypotension [Unknown]
  - Asthenia [Unknown]
  - Malnutrition [Unknown]
  - Fatigue [Unknown]
  - Respiratory disorder [Unknown]
  - Cough [Unknown]
  - Secretion discharge [Unknown]
  - Condition aggravated [Unknown]

NARRATIVE: CASE EVENT DATE: 20240201
